FAERS Safety Report 7378857-4 (Version None)
Quarter: 2011Q1

REPORT INFORMATION
  Report Type: 
  Country: None (occurrence: None)
  Receive Date: 20110328
  Receipt Date: 20110315
  Transmission Date: 20110831
  Serious: Yes (Hospitalization, Other)
  Sender: FDA-Public Use
  Company Number: PHHY2011US21487

PATIENT
  Age: 77 Year
  Sex: Female

DRUGS (12)
  1. FLAGYL [Concomitant]
  2. CALCIUM [Concomitant]
  3. BLOOD THINNER [Concomitant]
  4. IRON [Concomitant]
     Dosage: 325 MG,
  5. VITAMIN D [Concomitant]
  6. RECLAST [Suspect]
     Dosage: 5 MG,
     Route: 042
     Dates: start: 20110224
  7. SYNTHROID [Concomitant]
     Dosage: 125 MG,
  8. POTASSIUM CHLORIDE [Concomitant]
     Dosage: 10 VK
  9. MULTI-VITAMINS [Concomitant]
  10. CALCITRIOL [Concomitant]
     Dosage: 25 MG, TID
  11. CORAL CALCIUM (CALCIUM/ERGOCALCIFEROL) [Concomitant]
     Dosage: 2000 MG,
  12. DEPO-MEDROL [Concomitant]

REACTIONS (13)
  - BURNING SENSATION [None]
  - DRUG HYPERSENSITIVITY [None]
  - NECK PAIN [None]
  - PYREXIA [None]
  - BACK PAIN [None]
  - CHILLS [None]
  - PAIN [None]
  - BEDRIDDEN [None]
  - VASCULITIS [None]
  - ARTHRALGIA [None]
  - TREMOR [None]
  - MUSCULOSKELETAL STIFFNESS [None]
  - HEADACHE [None]
